FAERS Safety Report 20710083 (Version 21)
Quarter: 2024Q4

REPORT INFORMATION
  Report Type: Spontaneous
  Country: PL (occurrence: PL)
  Receive Date: 20220414
  Receipt Date: 20241007
  Transmission Date: 20250115
  Serious: Yes (Hospitalization, Other)
  Sender: MYLAN
  Company Number: PL-MYLANLABS-2022M1026396

PATIENT
  Age: 31 Year
  Sex: Male

DRUGS (59)
  1. ATORVASTATIN [Interacting]
     Active Substance: ATORVASTATIN
     Indication: Dyslipidaemia
     Dosage: 40 MILLIGRAM, DAILY
     Route: 065
  2. ATORVASTATIN [Interacting]
     Active Substance: ATORVASTATIN
     Dosage: 40 MILLIGRAM
     Route: 065
  3. SERTRALINE [Interacting]
     Active Substance: SERTRALINE HYDROCHLORIDE
     Indication: Insomnia
     Dosage: 50 MILLIGRAM, AM, INITIAL DOSE
     Route: 065
  4. SERTRALINE [Interacting]
     Active Substance: SERTRALINE HYDROCHLORIDE
     Indication: Affective disorder
     Dosage: 50 MILLIGRAM, DAILY
     Route: 065
  5. SERTRALINE [Interacting]
     Active Substance: SERTRALINE HYDROCHLORIDE
     Indication: Depression
     Dosage: 50 MILLIGRAM, QD
     Route: 065
  6. SERTRALINE [Interacting]
     Active Substance: SERTRALINE HYDROCHLORIDE
     Indication: Anxiety
     Dosage: 50 MILLIGRAM, QD, IN MORNING
     Route: 065
  7. SERTRALINE [Interacting]
     Active Substance: SERTRALINE HYDROCHLORIDE
     Dosage: 50 MILLIGRAM
     Route: 065
  8. ALPRAZOLAM [Interacting]
     Active Substance: ALPRAZOLAM
     Indication: Insomnia
     Dosage: 1 MG, QD (PER NIGHT AT BEDTIME), 1 MG HS
     Route: 065
  9. ALPRAZOLAM [Interacting]
     Active Substance: ALPRAZOLAM
     Indication: Anxiety
     Dosage: 1 MILLIGRAM, DAILY
     Route: 065
  10. ALPRAZOLAM [Interacting]
     Active Substance: ALPRAZOLAM
     Indication: Depression
     Dosage: 1 MG, QD (BEFORE NIGHT SLEEP
     Route: 065
  11. ALPRAZOLAM [Interacting]
     Active Substance: ALPRAZOLAM
     Indication: Affective disorder
     Dosage: 1 MILLIGRAM, QD
     Route: 065
  12. TADALAFIL [Interacting]
     Active Substance: TADALAFIL
     Indication: Erectile dysfunction
     Dosage: 10 MG, PRN (SHORT-TERNM BASIS), AS NEEDED
     Route: 065
  13. TADALAFIL [Interacting]
     Active Substance: TADALAFIL
     Indication: Anorgasmia
     Dosage: 10 MILLIGRAM, (10 MG ON AD HOC BASIS)
     Route: 065
  14. TADALAFIL [Interacting]
     Active Substance: TADALAFIL
     Indication: Insomnia
     Dosage: 10 MG, (10 MG SHORT-TERM BASIS)
     Route: 065
  15. TADALAFIL [Interacting]
     Active Substance: TADALAFIL
     Dosage: UNK
     Route: 065
  16. TADALAFIL [Interacting]
     Active Substance: TADALAFIL
     Dosage: 10 MILLIGRAM DAILY
     Route: 048
  17. ACETAMINOPHEN\TRAMADOL [Suspect]
     Active Substance: ACETAMINOPHEN\TRAMADOL
     Indication: Back pain
     Dosage: 1 DOSAGE FORM, BID (1 DF, 2X PER DAY)
     Route: 065
  18. ACETAMINOPHEN\TRAMADOL [Suspect]
     Active Substance: ACETAMINOPHEN\TRAMADOL
     Indication: Sacral pain
     Dosage: BID (37.5/325 MG)
     Route: 065
  19. DICLOFENAC SODIUM [Interacting]
     Active Substance: DICLOFENAC SODIUM
     Indication: Sacral pain
     Dosage: 150 MILLIGRAM, QD
     Route: 065
  20. DICLOFENAC SODIUM [Interacting]
     Active Substance: DICLOFENAC SODIUM
     Indication: Back pain
     Dosage: 150 MILLIGRAM, QD
     Route: 065
  21. DICLOFENAC SODIUM [Interacting]
     Active Substance: DICLOFENAC SODIUM
     Dosage: UNK
     Route: 065
  22. KETOPROFEN [Suspect]
     Active Substance: KETOPROFEN
     Indication: Analgesic therapy
     Dosage: 100 MILLIGRAM
     Route: 042
  23. KETOPROFEN [Suspect]
     Active Substance: KETOPROFEN
     Indication: Back pain
  24. RAMIPRIL [Interacting]
     Active Substance: RAMIPRIL
     Indication: Sacral pain
     Dosage: 10 MILLIGRAM
     Route: 065
  25. RAMIPRIL [Interacting]
     Active Substance: RAMIPRIL
     Indication: Hypertension
     Dosage: UNK
     Route: 065
  26. RAMIPRIL [Interacting]
     Active Substance: RAMIPRIL
     Indication: Hypertension
     Dosage: 10 MILLIGRAM, DAILY, ONGOING
     Route: 065
  27. MORPHINE [Suspect]
     Active Substance: MORPHINE
     Indication: Analgesic therapy
     Dosage: 10 MG, PRN (AS NEEDED)
     Route: 065
  28. MORPHINE [Suspect]
     Active Substance: MORPHINE
     Indication: Back pain
     Dosage: 10 MILLIGRAM
     Route: 042
  29. MORPHINE [Suspect]
     Active Substance: MORPHINE
     Indication: Pain
  30. ACETAMINOPHEN\TRAMADOL [Suspect]
     Active Substance: ACETAMINOPHEN\TRAMADOL
     Indication: Back pain
     Dosage: UNK, QD (EVERY 1 DAY)
     Route: 042
  31. ACETAMINOPHEN\TRAMADOL [Concomitant]
     Active Substance: ACETAMINOPHEN\TRAMADOL
     Indication: Sacral pain
     Dosage: UNK, BID (TO BE TAKEN 2 TIMES A DAY)
     Route: 065
  32. ACETAMINOPHEN\TRAMADOL [Concomitant]
     Active Substance: ACETAMINOPHEN\TRAMADOL
     Indication: Back pain
     Dosage: 2 DOSAGE FORM, QD
     Route: 065
  33. ACETAMINOPHEN\TRAMADOL [Concomitant]
     Active Substance: ACETAMINOPHEN\TRAMADOL
     Dosage: 1 DOSAGE FORM, BID,TWICE A DAY)
     Route: 065
  34. ACETAMINOPHEN\TRAMADOL [Concomitant]
     Active Substance: ACETAMINOPHEN\TRAMADOL
     Dosage: UNK, BID 37.5/325 MG TWICE A DAY
     Route: 065
  35. ACETAMINOPHEN\TRAMADOL [Concomitant]
     Active Substance: ACETAMINOPHEN\TRAMADOL
     Dosage: 2 DOSAGE FORM, QD
     Route: 065
  36. ATORVASTATIN [Concomitant]
     Active Substance: ATORVASTATIN
     Indication: Product used for unknown indication
     Dosage: 40 MILLIGRAM, QD
     Route: 065
  37. ATORVASTATIN [Concomitant]
     Active Substance: ATORVASTATIN
     Dosage: UNK
     Route: 065
  38. ATORVASTATIN [Concomitant]
     Active Substance: ATORVASTATIN
     Dosage: 40 MILLIGRAM
     Route: 065
  39. ACETAMINOPHEN\TRAMADOL HYDROCHLORIDE [Concomitant]
     Active Substance: ACETAMINOPHEN\TRAMADOL HYDROCHLORIDE
     Indication: Sacral pain
     Dosage: UNK, QD, (UNK UNK, BID)
     Route: 065
  40. ALPRAZOLAM [Concomitant]
     Active Substance: ALPRAZOLAM
     Indication: Insomnia
     Dosage: 1 MILLIGRAM, HS
     Route: 065
  41. ALPRAZOLAM [Concomitant]
     Active Substance: ALPRAZOLAM
     Indication: Anxiety
  42. ALPRAZOLAM [Concomitant]
     Active Substance: ALPRAZOLAM
     Indication: Affective disorder
  43. SERTRALINE [Concomitant]
     Active Substance: SERTRALINE HYDROCHLORIDE
     Dosage: 50 MILLIGRAM, AM
     Route: 065
  44. TADALAFIL [Concomitant]
     Active Substance: TADALAFIL
     Dosage: UNK
     Route: 065
  45. FUROSEMIDE [Concomitant]
     Active Substance: FUROSEMIDE
     Indication: Cardiac disorder
     Dosage: UNK
     Route: 042
  46. FUROSEMIDE [Concomitant]
     Active Substance: FUROSEMIDE
     Indication: Cardiovascular event prophylaxis
     Dosage: UNK
     Route: 042
  47. METOPROLOL [Concomitant]
     Active Substance: METOPROLOL
     Indication: Cardiac disorder
     Dosage: UNK
     Route: 065
  48. METOPROLOL [Concomitant]
     Active Substance: METOPROLOL
     Indication: Cardiovascular event prophylaxis
     Dosage: UNK
     Route: 042
  49. AGOMELATINE [Concomitant]
     Active Substance: AGOMELATINE
     Indication: Depression
     Dosage: 25 MILLIGRAM, DAILY
     Route: 065
  50. MAGNESIUM SULFATE [Concomitant]
     Active Substance: MAGNESIUM SULFATE
     Indication: Back pain
     Dosage: UNK
     Route: 065
  51. LORNOXICAM [Concomitant]
     Active Substance: LORNOXICAM
     Indication: Back pain
     Dosage: 8 MILLIGRAM DAILY
     Route: 048
  52. BUPRENORPHINE [Concomitant]
     Active Substance: BUPRENORPHINE
     Indication: Sleep disorder
     Dosage: TITRATED DOSE
     Route: 060
  53. BUPRENORPHINE [Concomitant]
     Active Substance: BUPRENORPHINE
     Indication: Back pain
     Dosage: 17.5 MICROGRAM, QH, REPLACED EVERY 72 HR
     Route: 062
  54. KETAMINE [Concomitant]
     Active Substance: KETAMINE
     Indication: Back pain
     Dosage: UNK
     Route: 042
  55. VALPROATE SODIUM [Concomitant]
     Active Substance: VALPROATE SODIUM
     Indication: Back pain
     Dosage: UNK
     Route: 065
  56. PITAVASTATIN [Concomitant]
     Active Substance: PITAVASTATIN
     Indication: Product used for unknown indication
     Dosage: 4 MILLIGRAM, QD
     Route: 065
  57. DICLOFENAC [Concomitant]
     Active Substance: DICLOFENAC
     Indication: Back pain
     Dosage: 150 MILLIGRAM, QD
     Route: 065
  58. RAMIPRIL [Concomitant]
     Active Substance: RAMIPRIL
     Indication: Sacral pain
     Dosage: 10 MILLIGRAM, QD,10 MILLIGRAM
     Route: 065
  59. KETOPROFEN [Concomitant]
     Active Substance: KETOPROFEN
     Indication: Back pain
     Dosage: 100 MILLIGRAM
     Route: 065

REACTIONS (23)
  - Hyperaesthesia [Recovered/Resolved]
  - Anorgasmia [Recovered/Resolved]
  - Erectile dysfunction [Recovering/Resolving]
  - Tachypnoea [Unknown]
  - Tachycardia [Unknown]
  - Blood pressure increased [Unknown]
  - Drug level increased [Unknown]
  - Back pain [Recovered/Resolved]
  - Treatment failure [Unknown]
  - Pain [Unknown]
  - Condition aggravated [Recovered/Resolved]
  - Drug-disease interaction [Recovered/Resolved]
  - Drug interaction [Recovered/Resolved]
  - Labelled drug-drug interaction issue [Recovered/Resolved]
  - Drug ineffective [Unknown]
  - Product use in unapproved indication [Unknown]
  - Ill-defined disorder [Unknown]
  - Affective disorder [Recovering/Resolving]
  - Sacral pain [Recovered/Resolved]
  - Neuralgia [Recovered/Resolved]
  - Insomnia [Recovering/Resolving]
  - Depression [Unknown]
  - Off label use [Unknown]
